FAERS Safety Report 9257828 (Version 1)
Quarter: 2013Q1

REPORT INFORMATION
  Report Type: Spontaneous
  Country: US (occurrence: None)
  Receive Date: 20121212
  Receipt Date: 20121212
  Transmission Date: 20140127
  Serious: No
  Sender: FDA-Public Use
  Company Number: 1209USA009360

PATIENT
  Sex: 0

DRUGS (3)
  1. VICTRELIS [Suspect]
     Indication: HEPATITIS C
     Dosage: 800 MG, TID, ORAL
     Route: 048
  2. RIBAVIRIN (RIBAVIRIN) [Concomitant]
  3. PEGINTERFERON ALFA-2B (PEGINTERFERON ALFA-2B) Y [Concomitant]

REACTIONS (1)
  - Oedema peripheral [None]
